FAERS Safety Report 4917879-7 (Version None)
Quarter: 2006Q1

REPORT INFORMATION
  Report Type: 
  Country: None (occurrence: None)
  Receive Date: 20060221
  Receipt Date: 20051104
  Transmission Date: 20060701
  Serious: Yes (Life-Threatening, Hospitalization)
  Sender: FDA-Public Use
  Company Number: DE-AMGEN-UK156864

PATIENT
  Age: 71 Year
  Sex: Female

DRUGS (24)
  1. KINERET [Suspect]
     Indication: RHEUMATOID ARTHRITIS
     Route: 058
     Dates: start: 20020701, end: 20050301
  2. FOSAMAX [Concomitant]
     Route: 065
  3. TILIDINE [Concomitant]
     Route: 065
  4. ASPIRIN [Concomitant]
     Route: 065
  5. ENOXAPARIN SODIUM [Concomitant]
     Route: 065
  6. AQUAPHOR [Concomitant]
     Route: 065
  7. FUROSEMIDE [Concomitant]
     Route: 065
  8. URBASON [Concomitant]
     Route: 065
  9. CONCOR [Concomitant]
     Route: 065
  10. SPIRONOLACTONE [Concomitant]
     Route: 065
  11. LOPIRIN [Concomitant]
     Route: 065
  12. CELEBREX [Concomitant]
     Route: 065
  13. NITRO-SPRAY [Concomitant]
     Route: 065
  14. PANTOPRAZOLE [Concomitant]
     Route: 065
  15. ZOPICLONE [Concomitant]
     Route: 065
  16. POTASSIUM [Concomitant]
     Route: 065
  17. CALCIUM CARBONATE/COLECALCIFEROL [Concomitant]
     Route: 065
  18. ACETYLDIGOXIN [Concomitant]
     Route: 065
  19. BISOPROLOL [Concomitant]
     Route: 065
  20. PREDNISONE [Concomitant]
     Route: 065
  21. TORSEMIDE [Concomitant]
     Route: 065
  22. DIGOXIN [Concomitant]
     Route: 065
  23. DIGITOXIN TAB [Concomitant]
     Route: 065
  24. ISOSORBIDE MONONITRATE [Concomitant]
     Route: 065

REACTIONS (11)
  - ARRHYTHMIA [None]
  - ATRIAL FIBRILLATION [None]
  - CARDIAC FAILURE [None]
  - CARDIAC FAILURE ACUTE [None]
  - HIP ARTHROPLASTY [None]
  - IMPAIRED HEALING [None]
  - MITRAL VALVE INCOMPETENCE [None]
  - OEDEMA PERIPHERAL [None]
  - SEPSIS [None]
  - STAPHYLOCOCCAL INFECTION [None]
  - WEIGHT INCREASED [None]
